FAERS Safety Report 9720877 (Version 3)
Quarter: 2014Q1

REPORT INFORMATION
  Report Type: Spontaneous
  Country: IT (occurrence: IT)
  Receive Date: 20131129
  Receipt Date: 20140124
  Transmission Date: 20141002
  Serious: Yes (Death)
  Sender: FDA-Public Use
  Company Number: PHHY2013IT135116

PATIENT
  Age: 79 Year
  Sex: Female

DRUGS (5)
  1. TICLOPIDINE [Suspect]
     Indication: THROMBOSIS PROPHYLAXIS
     Dosage: 500 MG, QD
     Route: 048
     Dates: start: 20120101, end: 20131111
  2. EUTIROX [Concomitant]
     Indication: HYPOTHYROIDISM
     Dosage: 75 UG, UNK
     Route: 048
     Dates: start: 20120101, end: 20131111
  3. DILATREND [Concomitant]
     Indication: HYPERTENSION
     Dosage: 180 MEQ, UNK
     Route: 048
     Dates: start: 20120101, end: 20131111
  4. APROVEL [Concomitant]
     Indication: HYPERTENSION
     Dosage: 150 MG, UNK
     Route: 048
     Dates: start: 20120101, end: 20131111
  5. TRIATEC [Concomitant]
     Indication: HYPERTENSION
     Dosage: 10 MG, UNK
     Route: 048
     Dates: start: 20120101, end: 20131111

REACTIONS (2)
  - Cerebral haemorrhage [Fatal]
  - Cardio-respiratory arrest [Fatal]
